FAERS Safety Report 24097900 (Version 1)
Quarter: 2024Q3

REPORT INFORMATION
  Report Type: Report from Study
  Country: PH (occurrence: PH)
  Receive Date: 20240716
  Receipt Date: 20240716
  Transmission Date: 20241016
  Serious: Yes (Other)
  Sender: TEVA
  Company Number: PH-JNJFOC-20240159156

PATIENT
  Age: 85 Year
  Sex: Female

DRUGS (1)
  1. RIBOMUSTIN [Suspect]
     Active Substance: BENDAMUSTINE HYDROCHLORIDE
     Indication: Diffuse large B-cell lymphoma
     Dosage: 100 MG, CYCLIC (INFUSION ON DAY 8: 26-JAN-2024 AND DAY 15: 2-FEB-2024).
     Route: 042
     Dates: start: 20240119

REACTIONS (3)
  - Diffuse large B-cell lymphoma [Recovered/Resolved]
  - Asthenia [Unknown]
  - Off label use [Recovered/Resolved]

NARRATIVE: CASE EVENT DATE: 20240119
